FAERS Safety Report 7632682-5 (Version None)
Quarter: 2011Q3

REPORT INFORMATION
  Report Type: 
  Country: None (occurrence: None)
  Receive Date: 20110725
  Receipt Date: 20101207
  Transmission Date: 20111222
  Serious: No
  Sender: FDA-Public Use
  Company Number: US-BRISTOL-MYERS SQUIBB COMPANY-15410665

PATIENT
  Age: 60 Year
  Sex: Male
  Weight: 82 kg

DRUGS (3)
  1. COUMADIN [Suspect]
     Indication: PULMONARY EMBOLISM
     Dosage: OCT10
     Route: 048
     Dates: start: 20100924
  2. CLARITIN [Suspect]
     Indication: RHINITIS ALLERGIC
     Route: 048
  3. CHOLESTEROL MEDICATION [Concomitant]
     Indication: BLOOD CHOLESTEROL INCREASED
     Dosage: STOPPED A MONTH AGO
     Dates: end: 20100101

REACTIONS (3)
  - MUSCLE SPASMS [None]
  - JOINT STIFFNESS [None]
  - MYALGIA [None]
